FAERS Safety Report 8941316 (Version 3)
Quarter: 2013Q1

REPORT INFORMATION
  Report Type: Spontaneous
  Country: BR (occurrence: BR)
  Receive Date: 20121203
  Receipt Date: 20130215
  Transmission Date: 20140127
  Serious: No
  Sender: FDA-Public Use
  Company Number: BR-ELI_LILLY_AND_COMPANY-BR201211005324

PATIENT
  Age: 92 Year
  Sex: Female

DRUGS (2)
  1. FORTEO [Suspect]
     Indication: OSTEOARTHRITIS
     Dosage: UNK, UNKNOWN
     Route: 065
     Dates: start: 20121114
  2. INSULIN [Concomitant]
     Indication: DIABETES MELLITUS
     Dosage: UNK, UNKNOWN
     Route: 065

REACTIONS (3)
  - Injection site injury [Unknown]
  - Intercepted drug dispensing error [Unknown]
  - Off label use [Unknown]
